FAERS Safety Report 21418256 (Version 1)
Quarter: 2022Q4

REPORT INFORMATION
  Report Type: Spontaneous
  Country: US (occurrence: None)
  Receive Date: 20221005
  Receipt Date: 20221005
  Transmission Date: 20230113
  Serious: No
  Sender: FDA-Public Use
  Company Number: None

PATIENT

DRUGS (1)
  1. ALPRAZOLAM [Suspect]
     Active Substance: ALPRAZOLAM

REACTIONS (4)
  - Product dispensing error [None]
  - Product dispensing error [None]
  - Transcription medication error [None]
  - Product communication issue [None]
